FAERS Safety Report 6847308-8 (Version None)
Quarter: 2010Q3

REPORT INFORMATION
  Report Type: 
  Country: None (occurrence: None)
  Receive Date: 20100713
  Receipt Date: 20100628
  Transmission Date: 20110219
  Serious: Yes (Other)
  Sender: FDA-Public Use
  Company Number: DSJ-2010-10141

PATIENT
  Age: 73 Year
  Sex: Female

DRUGS (4)
  1. OLMESARTAN MEDOXOMIL [Suspect]
     Indication: ESSENTIAL HYPERTENSION
     Dosage: 20 MG, PER ORAL
     Route: 048
     Dates: start: 20100430, end: 20100618
  2. CARVEDILOL [Concomitant]
  3. CRESTOR (ROSUVASTATIN) (ROSUVASTATIN) [Concomitant]
  4. ASPIRIN [Concomitant]

REACTIONS (5)
  - DIZZINESS [None]
  - DYSSTASIA [None]
  - HYPOTENSION [None]
  - MALAISE [None]
  - SOMNOLENCE [None]
